FAERS Safety Report 4451240-7 (Version None)
Quarter: 2004Q3

REPORT INFORMATION
  Report Type: 
  Country: None (occurrence: None)
  Receive Date: 20040915
  Receipt Date: 20040915
  Transmission Date: 20050211
  Serious: Yes (Other)
  Sender: FDA-Public Use
  Company Number: None

PATIENT
  Sex: Female
  Weight: 64.4108 kg

DRUGS (1)
  1. VFEND [Suspect]
     Indication: ASPERGILLOSIS
     Dosage: 1 PO BID
     Route: 048
     Dates: start: 20040804, end: 20040907

REACTIONS (2)
  - DERMATITIS BULLOUS [None]
  - RASH ERYTHEMATOUS [None]
